FAERS Safety Report 11805701 (Version 1)
Quarter: 2015Q4

REPORT INFORMATION
  Report Type: Spontaneous
  Country: US (occurrence: None)
  Receive Date: 20151204
  Receipt Date: 20151204
  Transmission Date: 20160305
  Serious: No
  Sender: FDA-Public Use
  Company Number: None

PATIENT
  Age: 32 Year
  Sex: Female
  Weight: 68.04 kg

DRUGS (7)
  1. CITALOPRAM HYDROBROMIDE 10 MG CAMBER [Suspect]
     Active Substance: CITALOPRAM HYDROBROMIDE
     Indication: DEPRESSION
     Route: 048
     Dates: start: 20151129, end: 20151130
  2. SYNTHROID [Concomitant]
     Active Substance: LEVOTHYROXINE SODIUM
  3. ALEVE [Concomitant]
     Active Substance: NAPROXEN SODIUM
  4. TYLENOL [Concomitant]
     Active Substance: ACETAMINOPHEN
  5. XANAX [Concomitant]
     Active Substance: ALPRAZOLAM
  6. GUMMY VITAMINS (D, B12, MULTIVITAMIN) [Concomitant]
  7. SPRINTEC [Concomitant]
     Active Substance: ETHINYL ESTRADIOL\NORGESTIMATE

REACTIONS (4)
  - Flatulence [None]
  - Diarrhoea [None]
  - Abdominal discomfort [None]
  - Abdominal distension [None]

NARRATIVE: CASE EVENT DATE: 20151129
